FAERS Safety Report 9282799 (Version 3)
Quarter: 2013Q3

REPORT INFORMATION
  Report Type: Spontaneous
  Country: US (occurrence: US)
  Receive Date: 20130510
  Receipt Date: 20130701
  Transmission Date: 20140515
  Serious: Yes (Hospitalization)
  Sender: FDA-Public Use
  Company Number: US-JNJFOC-20130500374

PATIENT
  Age: 74 Year
  Sex: Female
  Weight: 61.24 kg

DRUGS (7)
  1. XARELTO [Suspect]
     Indication: PULMONARY EMBOLISM
     Route: 048
     Dates: end: 201304
  2. COUMADIN [Suspect]
     Indication: PULMONARY EMBOLISM
     Route: 065
  3. BYSTOLIC [Concomitant]
     Route: 048
  4. MULTAQ [Concomitant]
     Route: 048
  5. GABAPENTIN [Concomitant]
     Dosage: STAT
     Route: 048
  6. DILANTIN [Concomitant]
     Dosage: 100 MG TWICE A DAY AND 50 MG ONCE A DAY
     Route: 048
  7. VYTORIN [Concomitant]
     Dosage: 10/40 MG
     Route: 048

REACTIONS (4)
  - Peripheral embolism [Unknown]
  - International normalised ratio increased [Unknown]
  - Pulmonary embolism [Unknown]
  - Haemoglobin decreased [Not Recovered/Not Resolved]
